FAERS Safety Report 15343478 (Version 2)
Quarter: 2019Q1

REPORT INFORMATION
  Report Type: Spontaneous
  Country: US (occurrence: US)
  Receive Date: 20180903
  Receipt Date: 20190221
  Transmission Date: 20190417
  Serious: No
  Sender: FDA-Public Use
  Company Number: US-PFIZER INC-2017382552

PATIENT
  Age: 18 Year
  Sex: Female

DRUGS (6)
  1. GENOTROPIN [Suspect]
     Active Substance: SOMATROPIN
     Indication: BLOOD GROWTH HORMONE ABNORMAL
     Dosage: UNK
  2. LEVOTHYROXINE. [Concomitant]
     Active Substance: LEVOTHYROXINE
     Indication: BLOOD THYROID STIMULATING HORMONE DECREASED
     Dosage: UNK
     Dates: start: 2009
  3. GENOTROPIN [Suspect]
     Active Substance: SOMATROPIN
     Dosage: 0.5 MG, DAILY
     Dates: start: 20170116
  4. GENOTROPIN [Suspect]
     Active Substance: SOMATROPIN
     Dosage: 10 MG, DAILY
     Dates: start: 2016
  5. GENOTROPIN [Suspect]
     Active Substance: SOMATROPIN
     Dosage: UNK
  6. ESTRACE [Concomitant]
     Active Substance: ESTRADIOL
     Indication: HORMONE REPLACEMENT THERAPY
     Dosage: UNK
     Dates: start: 2013

REACTIONS (1)
  - Insulin-like growth factor decreased [Unknown]

NARRATIVE: CASE EVENT DATE: 20180713
